FAERS Safety Report 4582585-8 (Version None)
Quarter: 2005Q1

REPORT INFORMATION
  Report Type: 
  Country: None (occurrence: None)
  Receive Date: 20050215
  Receipt Date: 20050127
  Transmission Date: 20050727
  Serious: Yes (Hospitalization)
  Sender: FDA-Public Use
  Company Number: PHBS2005KR01454

PATIENT
  Age: 43 Year
  Sex: Female

DRUGS (1)
  1. SANDOSTATIN LAR [Suspect]
     Dosage: UNK, UNK
     Dates: start: 20040209

REACTIONS (2)
  - ARTERIAL RUPTURE [None]
  - VASCULAR PSEUDOANEURYSM RUPTURED [None]
